FAERS Safety Report 7773785-4 (Version None)
Quarter: 2011Q3

REPORT INFORMATION
  Report Type: 
  Country: None (occurrence: None)
  Receive Date: 20110923
  Receipt Date: 20110919
  Transmission Date: 20111222
  Serious: Yes (Hospitalization)
  Sender: FDA-Public Use
  Company Number: FR-BRISTOL-MYERS SQUIBB COMPANY-16076416

PATIENT
  Age: 81 Year
  Sex: Female

DRUGS (18)
  1. CRESTOR [Suspect]
     Dosage: FOR A LONG TIME
     Route: 048
     Dates: end: 20110822
  2. FLECTOR [Suspect]
     Dosage: 1%GEL
     Route: 003
     Dates: start: 20110608, end: 20110822
  3. DOMPERIDONE [Suspect]
     Dosage: 3 TO 6 TIMES IN A DY
     Route: 048
     Dates: start: 20110706, end: 20110822
  4. GLUCOPHAGE [Suspect]
     Dosage: FOR A LONG TIME
     Route: 048
     Dates: end: 20110822
  5. DIGOXIN [Suspect]
     Dosage: 6 OUT OF 7 DYS FOR A LONG TIME
     Route: 048
     Dates: end: 20110822
  6. LANSOPRAZOLE [Suspect]
     Route: 048
     Dates: start: 20110706, end: 20110822
  7. LEVOTHYROXINE SODIUM [Concomitant]
  8. PHLOROGLUCINOL [Suspect]
     Dosage: FOR 7 DAYS
     Route: 048
     Dates: start: 20110816, end: 20110820
  9. ONGLYZA [Suspect]
     Dosage: FOR 48 DAYS
     Route: 048
     Dates: start: 20110706, end: 20110822
  10. ZOLPIDEM [Suspect]
     Route: 048
     Dates: start: 20110706, end: 20110822
  11. ALUMINUM HYDROXIDE AND MAGNESIUM TRISILICATE [Suspect]
     Route: 048
     Dates: start: 20110816, end: 20110822
  12. FUROSEMIDE [Suspect]
     Route: 048
     Dates: end: 20110822
  13. FOSINOPRIL SODIUM AND HYDROCHLOROTHIAZIDE [Suspect]
     Dosage: PRODUCT STRENGTH IS 20MG/12.5 MG
     Route: 048
     Dates: end: 20110822
  14. PREVISCAN [Suspect]
     Dosage: PRODUCT STRENGTH IS 20MG 1DF IS 0.75 UNITS NOT SPECIFIED
     Route: 048
     Dates: end: 20110822
  15. PIASCLEDINE [Suspect]
     Route: 048
     Dates: end: 20110822
  16. LOPERAMIDE HCL [Suspect]
     Dosage: FOR 48 DAYS
     Route: 048
     Dates: start: 20110706, end: 20110822
  17. METOPROLOL [Concomitant]
  18. ACETAMINOPHEN AND CODEINE PHOSPHATE [Suspect]
     Dosage: 169 DAYS
     Route: 048
     Dates: start: 20110316, end: 20110822

REACTIONS (6)
  - GENERAL PHYSICAL HEALTH DETERIORATION [None]
  - DIARRHOEA [None]
  - METABOLIC ACIDOSIS [None]
  - DEHYDRATION [None]
  - RENAL FAILURE [None]
  - HYPERKALAEMIA [None]
